FAERS Safety Report 9376346 (Version 1)
Quarter: 2013Q3

REPORT INFORMATION
  Report Type: Report from Study
  Country: ID (occurrence: ID)
  Receive Date: 20130701
  Receipt Date: 20130701
  Transmission Date: 20140515
  Serious: Yes (Death)
  Sender: FDA-Public Use
  Company Number: ID-ROCHE-1243267

PATIENT
  Age: 56 Year
  Sex: Female
  Weight: 71 kg

DRUGS (3)
  1. AVASTIN [Suspect]
     Indication: COLORECTAL CANCER
     Route: 041
     Dates: start: 20130328
  2. XELODA [Concomitant]
     Indication: COLORECTAL CANCER
     Route: 048
  3. DOCETAXEL [Concomitant]
     Indication: COLORECTAL CANCER

REACTIONS (1)
  - Death [Fatal]
